FAERS Safety Report 10213331 (Version 1)
Quarter: 2014Q2

REPORT INFORMATION
  Report Type: Spontaneous
  Country: US (occurrence: US)
  Receive Date: 20140603
  Receipt Date: 20140603
  Transmission Date: 20141212
  Serious: Yes (Other)
  Sender: FDA-Public Use
  Company Number: US-RB-066341-14

PATIENT
  Sex: Female

DRUGS (2)
  1. MUCINEX DM [Suspect]
     Indication: PRODUCT USED FOR UNKNOWN INDICATION
     Route: 048
     Dates: start: 20140523, end: 20140525
  2. SINGULAR [Concomitant]
     Indication: ASTHMA

REACTIONS (1)
  - Wheezing [Recovered/Resolved]
